FAERS Safety Report 16564098 (Version 1)
Quarter: 2019Q3

REPORT INFORMATION
  Report Type: Report from Study
  Country: None (occurrence: CA)
  Receive Date: 20190712
  Receipt Date: 20190712
  Transmission Date: 20191004
  Serious: Yes (Other)
  Sender: FDA-Public Use
  Company Number: CA-ABBVIE-19K-028-2822551-00

PATIENT
  Sex: Male

DRUGS (1)
  1. HUMIRA [Suspect]
     Active Substance: ADALIMUMAB
     Indication: PSORIATIC ARTHROPATHY
     Route: 058
     Dates: start: 20190307, end: 201905

REACTIONS (4)
  - Post procedural haemorrhage [Unknown]
  - Arthropathy [Not Recovered/Not Resolved]
  - Pain in extremity [Unknown]
  - Tooth infection [Unknown]

NARRATIVE: CASE EVENT DATE: 2019
